FAERS Safety Report 8851176 (Version 1)
Quarter: 2012Q4

REPORT INFORMATION
  Report Type: 
  Country: US (occurrence: US)
  Receive Date: 20121019
  Receipt Date: 20121019
  Transmission Date: 20130627
  Serious: No
  Sender: FDA-Public Use
  Company Number: US-BRISTOL-MYERS SQUIBB COMPANY-16766040

PATIENT
  Age: 57 Year
  Sex: Male

DRUGS (9)
  1. YERVOY [Suspect]
     Indication: METASTATIC MALIGNANT MELANOMA
     Dosage: Doses:3,received on 10May12,31May12,21Jun12,16Jul12.4 doses
150mg each dose
intp on 11-Jul-2012
     Route: 042
     Dates: start: 20120510
  2. ALLOPURINOL [Concomitant]
     Indication: GOUT
  3. VICODIN [Concomitant]
     Indication: PAIN
     Dosage: 1DF=500/5 mg.
  4. DIGOXIN [Concomitant]
  5. LISINOPRIL [Concomitant]
  6. FUROSEMIDE [Concomitant]
  7. METOPROLOL [Concomitant]
  8. WARFARIN [Concomitant]
     Dosage: QPM
  9. SIMVASTATIN [Concomitant]
     Dosage: QHS

REACTIONS (1)
  - Arthritis [Not Recovered/Not Resolved]
